FAERS Safety Report 20056473 (Version 1)
Quarter: 2021Q4

REPORT INFORMATION
  Report Type: Spontaneous
  Country: US (occurrence: None)
  Receive Date: 20211111
  Receipt Date: 20211111
  Transmission Date: 20220303
  Serious: No
  Sender: FDA-Public Use
  Company Number: US-ROCHE-2804643

PATIENT
  Sex: Female

DRUGS (2)
  1. PULMOZYME [Suspect]
     Active Substance: DORNASE ALFA
     Indication: Asthma
     Dosage: 1 MG/ML VIAL ONCE DAILY
     Route: 065
  2. PULMOZYME [Suspect]
     Active Substance: DORNASE ALFA
     Indication: Pneumonia aspiration

REACTIONS (3)
  - Off label use [Unknown]
  - Product temperature excursion issue [Unknown]
  - No adverse event [Unknown]
